FAERS Safety Report 21816975 (Version 1)
Quarter: 2023Q1

REPORT INFORMATION
  Report Type: Report from Study
  Country: AR (occurrence: AR)
  Receive Date: 20230104
  Receipt Date: 20230104
  Transmission Date: 20230417
  Serious: Yes (Other)
  Sender: FDA-Public Use
  Company Number: AR-TAKEDA-2022TUS092529

PATIENT
  Age: 18 Year
  Sex: Male

DRUGS (1)
  1. HUMAN IMMUNOGLOBULIN G\HYALURONIDASE RECOMBINANT HUMAN [Suspect]
     Active Substance: HUMAN IMMUNOGLOBULIN G\HYALURONIDASE RECOMBINANT HUMAN
     Indication: Product used for unknown indication
     Dosage: 400 MILLIGRAM, Q4WEEKS
     Route: 058
     Dates: start: 20220606

REACTIONS (6)
  - Neutropenia [Unknown]
  - Stomatitis [Unknown]
  - Noninfective gingivitis [Unknown]
  - Epistaxis [Recovered/Resolved]
  - Hypersensitivity [Unknown]
  - Localised oedema [Unknown]

NARRATIVE: CASE EVENT DATE: 20221031
